FAERS Safety Report 26043592 (Version 1)
Quarter: 2025Q4

REPORT INFORMATION
  Report Type: Spontaneous
  Country: CN (occurrence: CN)
  Receive Date: 20251113
  Receipt Date: 20251113
  Transmission Date: 20260117
  Serious: Yes (Hospitalization)
  Sender: BEIGENE
  Company Number: CN-BEIGENE-BGN-2025-019612

PATIENT
  Age: 59 Year
  Weight: 53 kg

DRUGS (12)
  1. TISLELIZUMAB [Suspect]
     Active Substance: TISLELIZUMAB
     Indication: Lung neoplasm malignant
     Dosage: 200 MILLIGRAM
  2. TISLELIZUMAB [Suspect]
     Active Substance: TISLELIZUMAB
     Dosage: 200 MILLIGRAM
     Route: 041
  3. TISLELIZUMAB [Suspect]
     Active Substance: TISLELIZUMAB
     Dosage: 200 MILLIGRAM
     Route: 041
  4. TISLELIZUMAB [Suspect]
     Active Substance: TISLELIZUMAB
     Dosage: 200 MILLIGRAM
  5. PEMETREXED DISODIUM [Suspect]
     Active Substance: PEMETREXED DISODIUM
     Indication: Lung neoplasm malignant
     Dosage: 0.8 GRAM
  6. PEMETREXED DISODIUM [Suspect]
     Active Substance: PEMETREXED DISODIUM
     Dosage: 0.8 GRAM
     Route: 041
  7. PEMETREXED DISODIUM [Suspect]
     Active Substance: PEMETREXED DISODIUM
     Dosage: 0.8 GRAM
     Route: 041
  8. PEMETREXED DISODIUM [Suspect]
     Active Substance: PEMETREXED DISODIUM
     Dosage: 0.8 GRAM
  9. BEVACIZUMAB [Suspect]
     Active Substance: BEVACIZUMAB
     Indication: Lung neoplasm malignant
     Dosage: 800 MILLIGRAM
  10. BEVACIZUMAB [Suspect]
     Active Substance: BEVACIZUMAB
     Dosage: 800 MILLIGRAM
     Route: 041
  11. BEVACIZUMAB [Suspect]
     Active Substance: BEVACIZUMAB
     Dosage: 800 MILLIGRAM
     Route: 041
  12. BEVACIZUMAB [Suspect]
     Active Substance: BEVACIZUMAB
     Dosage: 800 MILLIGRAM

REACTIONS (1)
  - Red blood cell count decreased [Not Recovered/Not Resolved]
